FAERS Safety Report 7736167-7 (Version None)
Quarter: 2011Q3

REPORT INFORMATION
  Report Type: 
  Country: None (occurrence: None)
  Receive Date: 20110908
  Receipt Date: 20110830
  Transmission Date: 20111222
  Serious: Yes (Other)
  Sender: FDA-Public Use
  Company Number: US-BAYER-2011-011020

PATIENT
  Sex: Male

DRUGS (5)
  1. LACTULOSE [Concomitant]
  2. FUROSEMIDE [Concomitant]
  3. OXYCODONE HCL [Concomitant]
  4. PROCHLORPERAZINE [Concomitant]
  5. NEXAVAR [Suspect]
     Dosage: 200 MG, BID

REACTIONS (7)
  - HAEMORRHAGE [None]
  - DIARRHOEA [None]
  - DYSPNOEA [None]
  - CONTUSION [None]
  - FATIGUE [None]
  - HEADACHE [None]
  - ABDOMINAL PAIN UPPER [None]
